FAERS Safety Report 9510021 (Version 1)
Quarter: 2013Q3

REPORT INFORMATION
  Report Type: Spontaneous
  Country: US (occurrence: US)
  Receive Date: 20130909
  Receipt Date: 20130909
  Transmission Date: 20140515
  Serious: No
  Sender: FDA-Public Use
  Company Number: US-BRISTOL-MYERS SQUIBB COMPANY-18861195

PATIENT
  Age: 53 Year
  Sex: Female
  Weight: 120.18 kg

DRUGS (14)
  1. ABILIFY [Suspect]
     Indication: SCHIZOPHRENIA
  2. EFFEXOR [Concomitant]
  3. TRAZODONE HCL [Concomitant]
  4. ATIVAN [Concomitant]
  5. LOSARTAN [Concomitant]
  6. OMEPRAZOLE [Concomitant]
  7. FOLIC ACID [Concomitant]
  8. INDERAL [Concomitant]
  9. SINGULAIR [Concomitant]
  10. ESTRADIOL [Concomitant]
  11. TALWIN [Concomitant]
  12. SYMBICORT [Concomitant]
  13. PROAIR HFA [Concomitant]
  14. ALBUTEROL [Concomitant]

REACTIONS (1)
  - Fall [Unknown]
